FAERS Safety Report 4380073-5 (Version None)
Quarter: 2004Q2

REPORT INFORMATION
  Report Type: 
  Country: None (occurrence: None)
  Receive Date: 20040614
  Receipt Date: 20040308
  Transmission Date: 20050107
  Serious: No
  Sender: FDA-Public Use
  Company Number: M03-341-178

PATIENT
  Age: 68 Year
  Sex: Male
  Weight: 82 kg

DRUGS (1)
  1. VELCADE [Suspect]
     Indication: CHRONIC LYMPHOCYTIC LEUKAEMIA
     Dosage: 2.5MG: INTRAVENOUS BOLUS
     Route: 040
     Dates: start: 20031010, end: 20031209

REACTIONS (7)
  - MOUTH ULCERATION [None]
  - MUCOSAL DISCOLOURATION [None]
  - NIGHT SWEATS [None]
  - ORAL PAIN [None]
  - PYREXIA [None]
  - RASH VESICULAR [None]
  - WHITE BLOOD CELL COUNT INCREASED [None]
